FAERS Safety Report 7183703-8 (Version None)
Quarter: 2010Q4

REPORT INFORMATION
  Report Type: 
  Country: None (occurrence: None)
  Receive Date: 20101220
  Receipt Date: 20101220
  Transmission Date: 20110411
  Serious: Yes (Hospitalization)
  Sender: FDA-Public Use
  Company Number: None

PATIENT
  Age: 73 Year
  Sex: Female
  Weight: 70.5 kg

DRUGS (5)
  1. DICLOFENAC SODIUM [Suspect]
     Indication: ARTHRALGIA
     Dosage: 100 MG DAILY PO CHRONIC
     Route: 048
  2. HYDROCHLOROTHIAZIDE [Concomitant]
  3. LIPITOR [Concomitant]
  4. TRAMADOL [Concomitant]
  5. DETROL LA [Concomitant]

REACTIONS (8)
  - ANAEMIA [None]
  - ASTHENIA [None]
  - COLITIS [None]
  - CROHN'S DISEASE [None]
  - DIVERTICULUM [None]
  - FATIGUE [None]
  - GASTRIC ULCER [None]
  - OCCULT BLOOD POSITIVE [None]
